FAERS Safety Report 22321313 (Version 1)
Quarter: 2023Q2

REPORT INFORMATION
  Report Type: Report from Study
  Country: US (occurrence: US)
  Receive Date: 20230515
  Receipt Date: 20230515
  Transmission Date: 20230722
  Serious: Yes (Other)
  Sender: FDA-Public Use
  Company Number: US-002147023-NVSC2023US106782

PATIENT
  Sex: Female

DRUGS (8)
  1. COSENTYX [Suspect]
     Active Substance: SECUKINUMAB
     Indication: Psoriasis
     Dosage: 300 MG
     Route: 058
  2. LIDOCAINE [Suspect]
     Active Substance: LIDOCAINE
     Indication: Psoriasis
     Dosage: 5 % (ADHESIVE PATCH, MEDICATED)
     Route: 061
  3. ESTRADIOL [Suspect]
     Active Substance: ESTRADIOL
     Indication: Psoriasis
     Dosage: 2 MG
     Route: 048
  4. HYDROCORTISONE [Suspect]
     Active Substance: HYDROCORTISONE
     Indication: Psoriasis
     Dosage: UNK
     Route: 065
  5. ACYCLOVIR [Suspect]
     Active Substance: ACYCLOVIR
     Indication: Psoriasis
     Dosage: 400 MG
     Route: 048
  6. CEVIMELINE [Suspect]
     Active Substance: CEVIMELINE
     Indication: Psoriasis
     Dosage: 30 MG
     Route: 048
  7. CYCLOBENZAPRINE [Suspect]
     Active Substance: CYCLOBENZAPRINE
     Indication: Psoriasis
     Dosage: 5 MG
     Route: 048
  8. SULFASALAZINE [Suspect]
     Active Substance: SULFASALAZINE
     Indication: Psoriasis
     Dosage: 500 MG (DELAYED RELEASE (DR/EC)
     Route: 048

REACTIONS (19)
  - Systemic lupus erythematosus [Unknown]
  - Sjogren^s syndrome [Unknown]
  - Rheumatoid arthritis [Unknown]
  - Psoriatic arthropathy [Unknown]
  - Rash [Unknown]
  - Papule [Unknown]
  - Hyperhidrosis [Unknown]
  - Seborrhoeic keratosis [Unknown]
  - Skin exfoliation [Unknown]
  - Dyshidrotic eczema [Unknown]
  - Solar lentigo [Unknown]
  - Nail pitting [Unknown]
  - Pruritus [Unknown]
  - Middle insomnia [Unknown]
  - Psoriasis [Unknown]
  - Skin lesion [Unknown]
  - Inflammation [Unknown]
  - Arthralgia [Unknown]
  - Drug ineffective [Unknown]
